FAERS Safety Report 11847797 (Version 2)
Quarter: 2016Q2

REPORT INFORMATION
  Report Type: Spontaneous
  Country: BR (occurrence: BR)
  Receive Date: 20151217
  Receipt Date: 20160413
  Transmission Date: 20160815
  Serious: Yes (Hospitalization, Other)
  Sender: FDA-Public Use
  Company Number: BR-PFIZER INC-2015443456

PATIENT
  Age: 46 Year
  Sex: Female
  Weight: 84 kg

DRUGS (3)
  1. GEODON [Suspect]
     Active Substance: ZIPRASIDONE HYDROCHLORIDE\ZIPRASIDONE MESYLATE
     Dosage: 40 MG, UNK
     Route: 048
     Dates: start: 2014
  2. CARBOLITIUM [Concomitant]
     Active Substance: LITHIUM CARBONATE
     Dosage: UNK
  3. GEODON [Suspect]
     Active Substance: ZIPRASIDONE HYDROCHLORIDE\ZIPRASIDONE MESYLATE
     Indication: BIPOLAR DISORDER
     Dosage: 80 MG, UNK
     Route: 048
     Dates: start: 2000

REACTIONS (10)
  - Visual acuity reduced [Not Recovered/Not Resolved]
  - Activities of daily living impaired [Unknown]
  - Abortion spontaneous [Unknown]
  - Weight decreased [Unknown]
  - Muscle spasms [Unknown]
  - Neoplasm malignant [Not Recovered/Not Resolved]
  - Diplopia [Recovering/Resolving]
  - Blood calcium increased [Unknown]
  - Respiratory arrest [Unknown]
  - Lacrimation increased [Not Recovered/Not Resolved]

NARRATIVE: CASE EVENT DATE: 2014
